FAERS Safety Report 24309539 (Version 1)
Quarter: 2024Q3

REPORT INFORMATION
  Report Type: Spontaneous
  Country: CA (occurrence: CA)
  Receive Date: 20240912
  Receipt Date: 20240912
  Transmission Date: 20241016
  Serious: Yes (Other)
  Sender: PFIZER
  Company Number: CA-PFIZER INC-202300232924

PATIENT
  Age: 39 Year
  Sex: Female

DRUGS (3)
  1. RUXIENCE [Suspect]
     Active Substance: RITUXIMAB-PVVR
     Indication: Multiple sclerosis
     Dosage: 1000 MG,  Q6 MONTHS
     Route: 042
     Dates: start: 20230313
  2. RUXIENCE [Suspect]
     Active Substance: RITUXIMAB-PVVR
     Dosage: 1000 MG, Q2 WEEKS X 2 DOSES THEN 1000MG IV Q6 MONTHS
     Route: 042
     Dates: start: 20230825, end: 20230908
  3. RUXIENCE [Suspect]
     Active Substance: RITUXIMAB-PVVR
     Dosage: 1000 MG,  Q6 MONTHS
     Route: 042
     Dates: start: 20240313

REACTIONS (2)
  - Eye laser surgery [Unknown]
  - Off label use [Unknown]

NARRATIVE: CASE EVENT DATE: 20240101
